FAERS Safety Report 21229563 (Version 5)
Quarter: 2023Q1

REPORT INFORMATION
  Report Type: Report from Study
  Country: BR (occurrence: BR)
  Receive Date: 20220818
  Receipt Date: 20230202
  Transmission Date: 20230418
  Serious: Yes (Other)
  Sender: FDA-Public Use
  Company Number: BR-JNJFOC-20220826438

PATIENT
  Sex: Female
  Weight: 67 kg

DRUGS (2)
  1. INFLIXIMAB [Suspect]
     Active Substance: INFLIXIMAB
     Indication: Crohn^s disease
     Dosage: 6 VIALS
     Route: 041
     Dates: start: 2021
  2. CERTOLIZUMAB [Concomitant]
     Active Substance: CERTOLIZUMAB

REACTIONS (4)
  - Blindness unilateral [Recovering/Resolving]
  - Crohn^s disease [Unknown]
  - Inflammation [Recovering/Resolving]
  - Drug ineffective [Unknown]
